FAERS Safety Report 14999042 (Version 1)
Quarter: 2018Q2

REPORT INFORMATION
  Report Type: Spontaneous
  Country: US (occurrence: US)
  Receive Date: 20180612
  Receipt Date: 20180612
  Transmission Date: 20180711
  Serious: Yes (Death)
  Sender: FDA-Public Use
  Company Number: US-ASTELLAS-2018US026145

PATIENT
  Age: 92 Year
  Sex: Female

DRUGS (1)
  1. LEXISCAN [Suspect]
     Active Substance: REGADENOSON
     Indication: CARDIAC STRESS TEST
     Dosage: 0.4 MG/5 ML ONE TIME
     Route: 065
     Dates: start: 20180605, end: 20180605

REACTIONS (2)
  - Death [Fatal]
  - Nausea [Unknown]

NARRATIVE: CASE EVENT DATE: 20180605
